FAERS Safety Report 5761225-6 (Version None)
Quarter: 2008Q2

REPORT INFORMATION
  Report Type: 
  Country: None (occurrence: None)
  Receive Date: 20080606
  Receipt Date: 20080528
  Transmission Date: 20081010
  Serious: Yes (Hospitalization)
  Sender: FDA-Public Use
  Company Number: PHBS2008US04668

PATIENT
  Age: 34 Year
  Sex: Female

DRUGS (4)
  1. METOPROLOL TARTRATE [Suspect]
     Indication: HYPERTENSION
     Dosage: 50 MG/MORNING AND 25 MG/EVENING
  2. TACROLIMUS [Concomitant]
     Dosage: 1 MG, BID
     Route: 065
  3. PREDNISONE TAB [Concomitant]
     Dosage: 5 MG, QD
     Route: 065
  4. CALCIUM ACETATE [Concomitant]
     Dosage: 1334 MG, TID

REACTIONS (8)
  - BLOOD PRESSURE INCREASED [None]
  - CAESAREAN SECTION [None]
  - DRUG EXPOSURE DURING PREGNANCY [None]
  - ECLAMPSIA [None]
  - FLUID OVERLOAD [None]
  - OEDEMA PERIPHERAL [None]
  - PULMONARY OEDEMA [None]
  - RESPIRATORY DISTRESS [None]
